FAERS Safety Report 12962348 (Version 1)
Quarter: 2016Q4

REPORT INFORMATION
  Report Type: Spontaneous
  Country: US (occurrence: US)
  Receive Date: 20161121
  Receipt Date: 20161121
  Transmission Date: 20170207
  Serious: No
  Sender: FDA-Public Use
  Company Number: US-ALLERGAN-1659287US

PATIENT
  Age: 68 Year
  Sex: Male

DRUGS (10)
  1. ZETIA [Concomitant]
     Active Substance: EZETIMIBE
     Indication: CARDIOVASCULAR DISORDER
     Route: 048
  2. LATANAPROST/TIMOLOL [Concomitant]
     Active Substance: LATANOPROST\TIMOLOL
     Indication: GLAUCOMA
     Dosage: 1 GTT, UNK
     Route: 047
  3. ZOLOFT [Concomitant]
     Active Substance: SERTRALINE HYDROCHLORIDE
     Indication: CARDIOVASCULAR DISORDER
     Route: 048
  4. COMBIGAN [Suspect]
     Active Substance: BRIMONIDINE TARTRATE\TIMOLOL MALEATE
     Indication: GLAUCOMA
     Dosage: 2 GTT, BID
     Route: 047
     Dates: start: 201512
  5. LIPITOR [Concomitant]
     Active Substance: ATORVASTATIN CALCIUM
     Indication: CARDIOVASCULAR DISORDER
     Route: 048
  6. VITAMIN B [Concomitant]
     Active Substance: VITAMIN B
     Route: 048
  7. BABY ASPIRIN [Concomitant]
     Active Substance: ASPIRIN
     Indication: CARDIOVASCULAR DISORDER
     Route: 048
  8. CALCIUM [Concomitant]
     Active Substance: CALCIUM
     Route: 048
  9. XANAX [Concomitant]
     Active Substance: ALPRAZOLAM
     Indication: CARDIOVASCULAR DISORDER
     Dosage: 0.25 MG, BID
     Route: 048
  10. AVAPRO [Concomitant]
     Active Substance: IRBESARTAN
     Indication: CARDIOVASCULAR DISORDER
     Route: 048

REACTIONS (1)
  - Ocular hyperaemia [Not Recovered/Not Resolved]

NARRATIVE: CASE EVENT DATE: 201512
